FAERS Safety Report 16335741 (Version 1)
Quarter: 2019Q2

REPORT INFORMATION
  Report Type: Spontaneous
  Country: US (occurrence: US)
  Receive Date: 20190415
  Receipt Date: 20190415
  Transmission Date: 20190711
  Serious: Yes (Disabling)
  Sender: FDA-Public Use
  Company Number: None

PATIENT
  Age: 72 Year
  Sex: Female
  Weight: 52.16 kg

DRUGS (9)
  1. PRAVASTATIN. [Concomitant]
     Active Substance: PRAVASTATIN
  2. SUCRALFATE. [Concomitant]
     Active Substance: SUCRALFATE
  3. BIOTIN [Concomitant]
     Active Substance: BIOTIN
  4. FAMOTIDINE. [Concomitant]
     Active Substance: FAMOTIDINE
  5. VITAMIN B COMPLEX [Concomitant]
     Active Substance: CYANOCOBALAMIN\DEXPANTHENOL\NIACINAMIDE\PYRIDOXINE HYDROCHLORIDE\RIBOFLAVIN 5^-PHOSPHATE SODIUM\THIAMINE HYDROCHLORIDE\VITAMIN B COMPLEX
  6. PROLIA [Suspect]
     Active Substance: DENOSUMAB
  7. COQ10 [Concomitant]
     Active Substance: UBIDECARENONE
  8. CALCIUM [Concomitant]
     Active Substance: CALCIUM
  9. PROBIOTIC [Concomitant]
     Active Substance: PROBIOTICS NOS

REACTIONS (4)
  - Mastication disorder [None]
  - Trismus [None]
  - Tongue exfoliation [None]
  - Oral disorder [None]

NARRATIVE: CASE EVENT DATE: 201811
